FAERS Safety Report 22286712 (Version 1)
Quarter: 2023Q2

REPORT INFORMATION
  Report Type: Spontaneous
  Country: NO (occurrence: NO)
  Receive Date: 20230505
  Receipt Date: 20230505
  Transmission Date: 20230722
  Serious: Yes (Other)
  Sender: FDA-Public Use
  Company Number: NO-002147023-NVSC2023NO098945

PATIENT
  Sex: Female

DRUGS (2)
  1. XOLAIR [Suspect]
     Active Substance: OMALIZUMAB
     Indication: Asthma
     Dosage: UNK (START DATE ABOUT 10 YEARS AGO)
     Route: 058
  2. SANDIMMUNE [Concomitant]
     Active Substance: CYCLOSPORINE
     Indication: Product used for unknown indication
     Dosage: 75 MG, BID (BOTTOM, 75 MG X2 PER DAY, BEEN USING SANDIMMUN SINCE JAN LAST YEAR)
     Dates: start: 202201

REACTIONS (2)
  - Anaphylactic reaction [Unknown]
  - Off label use [Unknown]
